FAERS Safety Report 18706766 (Version 2)
Quarter: 2021Q1

REPORT INFORMATION
  Report Type: Report from Study
  Country: BR (occurrence: BR)
  Receive Date: 20210106
  Receipt Date: 20210208
  Transmission Date: 20210419
  Serious: Yes (Hospitalization, Other)
  Sender: FDA-Public Use
  Company Number: BR-JNJFOC-20201256809

PATIENT
  Age: 39 Year
  Sex: Female
  Weight: 66 kg

DRUGS (3)
  1. CIPROFLOXACIN HYDROCHLORIDE. [Suspect]
     Active Substance: CIPROFLOXACIN HYDROCHLORIDE
     Indication: ABDOMINAL PAIN
     Dosage: FOR 7 DAY
     Route: 065
  2. STELARA [Suspect]
     Active Substance: USTEKINUMAB
     Indication: PSORIASIS
     Route: 058
  3. STELARA [Suspect]
     Active Substance: USTEKINUMAB

REACTIONS (10)
  - Nephrolithiasis [Unknown]
  - Abdominal pain [Unknown]
  - Psoriasis [Unknown]
  - Drug ineffective [Unknown]
  - Musculoskeletal stiffness [Unknown]
  - Infection [Unknown]
  - Hypersensitivity [Unknown]
  - Hypothermia [Unknown]
  - Headache [Unknown]
  - Arthralgia [Unknown]

NARRATIVE: CASE EVENT DATE: 2020
